FAERS Safety Report 21640499 (Version 1)
Quarter: 2022Q4

REPORT INFORMATION
  Report Type: Report from Study
  Country: GB (occurrence: GB)
  Receive Date: 20221124
  Receipt Date: 20221124
  Transmission Date: 20230113
  Serious: Yes (Other)
  Sender: FDA-Public Use
  Company Number: GB-JNJFOC-20221134943

PATIENT
  Age: 4 Decade
  Sex: Male

DRUGS (3)
  1. STELARA [Suspect]
     Active Substance: USTEKINUMAB
     Indication: Crohn^s disease
     Route: 058
     Dates: start: 20220427
  2. STELARA [Suspect]
     Active Substance: USTEKINUMAB
  3. AMLODIPINE [Concomitant]
     Active Substance: AMLODIPINE BESYLATE
     Route: 065

REACTIONS (5)
  - Paralysis [Unknown]
  - Brain neoplasm [Unknown]
  - Road traffic accident [Unknown]
  - CSF shunt operation [Unknown]
  - Crohn^s disease [Not Recovered/Not Resolved]
